FAERS Safety Report 7876963-9 (Version None)
Quarter: 2011Q4

REPORT INFORMATION
  Report Type: 
  Country: None (occurrence: None)
  Receive Date: 20111031
  Receipt Date: 20111020
  Transmission Date: 20120403
  Serious: Yes (Hospitalization, Other)
  Sender: FDA-Public Use
  Company Number: PHHY2011US93009

PATIENT
  Age: 95 Year
  Sex: Female

DRUGS (6)
  1. DIGOXIN [Concomitant]
  2. OMEPRAZOLE [Concomitant]
  3. WARFARIN SODIUM [Suspect]
     Dosage: UNK
  4. FOSINOPRIL SODIUM [Concomitant]
  5. METOPROLOL [Concomitant]
  6. METHIMAZOLE [Concomitant]

REACTIONS (8)
  - HAEMATOMA [None]
  - PHOTOPHOBIA [None]
  - PHONOPHOBIA [None]
  - COAGULOPATHY [None]
  - DYSARTHRIA [None]
  - THALAMUS HAEMORRHAGE [None]
  - HEADACHE [None]
  - INTERNATIONAL NORMALISED RATIO INCREASED [None]
